FAERS Safety Report 10732277 (Version 1)
Quarter: 2015Q1

REPORT INFORMATION
  Report Type: Spontaneous
  Country: US (occurrence: US)
  Receive Date: 20150123
  Receipt Date: 20150123
  Transmission Date: 20150721
  Serious: No
  Sender: FDA-Public Use
  Company Number: US-BAYER-2015-006606

PATIENT
  Age: 21 Year
  Sex: Female

DRUGS (1)
  1. GADAVIST [Suspect]
     Active Substance: GADOBUTROL
     Dosage: 7 ML, ONCE
     Route: 042
     Dates: start: 20141218, end: 20141218

REACTIONS (6)
  - Hypersensitivity [None]
  - Ocular hyperaemia [None]
  - Eye pruritus [None]
  - Eye swelling [None]
  - Dyspnoea [None]
  - Cough [None]

NARRATIVE: CASE EVENT DATE: 20141218
